FAERS Safety Report 7347809-2 (Version None)
Quarter: 2011Q1

REPORT INFORMATION
  Report Type: 
  Country: None (occurrence: None)
  Receive Date: 20110311
  Receipt Date: 20110302
  Transmission Date: 20110831
  Serious: Yes (Hospitalization, Disabling, Other)
  Sender: FDA-Public Use
  Company Number: US-MERCK-1006USA03994

PATIENT
  Age: 59 Year
  Sex: Female
  Weight: 78 kg

DRUGS (4)
  1. FOSAMAX [Suspect]
     Indication: OSTEOPOROSIS
     Route: 048
     Dates: start: 19990101, end: 20020101
  2. CALCIUM (UNSPECIFIED) AND VITAMIN D (UNSPECIFIED) [Concomitant]
     Indication: OSTEOPOROSIS
     Route: 065
  3. ACTONEL [Suspect]
     Indication: OSTEOPOROSIS
     Route: 048
     Dates: start: 20020101, end: 20040101
  4. BONIVA [Suspect]
     Indication: OSTEOPOROSIS
     Route: 048
     Dates: start: 20040101, end: 20060101

REACTIONS (24)
  - JOINT INJURY [None]
  - RENAL CYST [None]
  - LUMBAR SPINAL STENOSIS [None]
  - ADVERSE EVENT [None]
  - RETINAL DETACHMENT [None]
  - SNORING [None]
  - HYPERSENSITIVITY [None]
  - DEVICE FAILURE [None]
  - ASTHMA [None]
  - ADVERSE DRUG REACTION [None]
  - GASTROOESOPHAGEAL REFLUX DISEASE [None]
  - OSTEOMYELITIS [None]
  - GALLBLADDER DISORDER [None]
  - VITAMIN D DECREASED [None]
  - PYURIA [None]
  - OSTEONECROSIS OF JAW [None]
  - ARTHRALGIA [None]
  - SEASONAL ALLERGY [None]
  - SINUS DISORDER [None]
  - PYOGENIC GRANULOMA [None]
  - DYSPNOEA [None]
  - BUNION [None]
  - DRY MOUTH [None]
  - BONE DENSITY DECREASED [None]
